FAERS Safety Report 13651374 (Version 3)
Quarter: 2018Q1

REPORT INFORMATION
  Report Type: Spontaneous
  Country: ES (occurrence: ES)
  Receive Date: 20170614
  Receipt Date: 20180119
  Transmission Date: 20180508
  Serious: Yes (Other)
  Sender: FDA-Public Use
  Company Number: ES-PFIZER INC-2017255213

PATIENT
  Age: 41 Year
  Sex: Male

DRUGS (5)
  1. PAROMOMYCIN SULFATE. [Suspect]
     Active Substance: PAROMOMYCIN SULFATE
     Indication: VISCERAL LEISHMANIASIS
     Dosage: 1500 MG, DAILY
     Route: 030
  2. DOLUTEGRAVIR [Concomitant]
     Active Substance: DOLUTEGRAVIR
     Indication: HIV INFECTION
     Dosage: 50 MG, DAILY
     Route: 048
  3. RITONAVIR. [Concomitant]
     Active Substance: RITONAVIR
     Indication: HIV INFECTION
     Dosage: 100 MG, DAILY
     Route: 048
  4. DARUNAVIR [Concomitant]
     Active Substance: DARUNAVIR
     Indication: HIV INFECTION
     Dosage: 800 MG, DAILY
     Route: 048
  5. MILTEFOSINE [Concomitant]
     Active Substance: MILTEFOSINE
     Indication: VISCERAL LEISHMANIASIS
     Dosage: 50 MG EVERY 12 HOURS
     Route: 048

REACTIONS (1)
  - Deafness [Unknown]
